FAERS Safety Report 9707219 (Version 1)
Quarter: 2013Q4

REPORT INFORMATION
  Report Type: Spontaneous
  Country: US (occurrence: US)
  Receive Date: 20131125
  Receipt Date: 20131125
  Transmission Date: 20140711
  Serious: No
  Sender: FDA-Public Use
  Company Number: US-MALLINCKRODT-T201302383

PATIENT
  Sex: 0

DRUGS (2)
  1. ULTRA-TECHNEKOW DTE GENERATOR [Suspect]
     Indication: SCAN MYOCARDIAL PERFUSION
     Dosage: UNK
     Dates: start: 20130507, end: 20130507
  2. CARDIOLITE /01099101/ [Suspect]
     Indication: SCAN MYOCARDIAL PERFUSION
     Dosage: UNK
     Dates: start: 20130507, end: 20130507

REACTIONS (3)
  - Abdominal pain [Unknown]
  - Nausea [Unknown]
  - Chills [Unknown]
